FAERS Safety Report 12367017 (Version 2)
Quarter: 2016Q3

REPORT INFORMATION
  Report Type: Spontaneous
  Country: US (occurrence: US)
  Receive Date: 20160513
  Receipt Date: 20160705
  Transmission Date: 20161109
  Serious: Yes (Other)
  Sender: FDA-Public Use
  Company Number: US-BAYER-2016-092900

PATIENT
  Age: 20 Year
  Sex: Female
  Weight: 55 kg

DRUGS (1)
  1. SKYLA [Suspect]
     Active Substance: LEVONORGESTREL
     Indication: CONTRACEPTION
     Dosage: 14 MCG/24HR, CONT
     Route: 015
     Dates: start: 20150515, end: 20160324

REACTIONS (6)
  - Pain [None]
  - Drug ineffective [None]
  - Ectopic pregnancy with contraceptive device [None]
  - Dizziness [None]
  - Fatigue [None]
  - Vaginal haemorrhage [None]

NARRATIVE: CASE EVENT DATE: 20160318
